FAERS Safety Report 12065539 (Version 1)
Quarter: 2016Q1

REPORT INFORMATION
  Report Type: Spontaneous
  Country: US (occurrence: US)
  Receive Date: 20160210
  Receipt Date: 20160210
  Transmission Date: 20160526
  Serious: No
  Sender: FDA-Public Use
  Company Number: US-ALLERGAN-1521536US

PATIENT
  Sex: Male

DRUGS (2)
  1. BOTOX [Suspect]
     Active Substance: ONABOTULINUMTOXINA
     Indication: TEMPOROMANDIBULAR JOINT SYNDROME
     Dosage: 100 UNITS, SINGLE
     Route: 030
     Dates: start: 20151001, end: 20151001
  2. SOMA [Concomitant]
     Active Substance: CARISOPRODOL
     Indication: TEMPOROMANDIBULAR JOINT SYNDROME
     Route: 048

REACTIONS (3)
  - Drug administered at inappropriate site [Unknown]
  - Drug ineffective [Unknown]
  - Off label use [Unknown]
